FAERS Safety Report 23712687 (Version 1)
Quarter: 2024Q2

REPORT INFORMATION
  Report Type: Spontaneous
  Country: US (occurrence: None)
  Receive Date: 20240405
  Receipt Date: 20240405
  Transmission Date: 20240716
  Serious: No
  Sender: FDA-Public Use
  Company Number: None

PATIENT
  Age: 78 Year
  Sex: Male

DRUGS (1)
  1. CAPECITABINE [Suspect]
     Active Substance: CAPECITABINE
     Indication: Bile duct cancer

REACTIONS (4)
  - Product use in unapproved indication [None]
  - Toxicity to various agents [None]
  - Product communication issue [None]
  - Product communication issue [None]

NARRATIVE: CASE EVENT DATE: 20181124
